FAERS Safety Report 7785021-3 (Version None)
Quarter: 2011Q3

REPORT INFORMATION
  Report Type: 
  Country: None (occurrence: None)
  Receive Date: 20110929
  Receipt Date: 20110922
  Transmission Date: 20111222
  Serious: Yes (Death, Hospitalization)
  Sender: FDA-Public Use
  Company Number: SE-BRISTOL-MYERS SQUIBB COMPANY-16106585

PATIENT
  Sex: Female

DRUGS (2)
  1. EPIRUBICIN [Suspect]
     Indication: BREAST CANCER METASTATIC
  2. PACLITAXEL [Suspect]
     Indication: BREAST CANCER METASTATIC

REACTIONS (3)
  - HEPATIC FUNCTION ABNORMAL [None]
  - BONE MARROW FAILURE [None]
  - CONSTIPATION [None]
